FAERS Safety Report 15469293 (Version 1)
Quarter: 2018Q4

REPORT INFORMATION
  Report Type: Spontaneous
  Country: CZ (occurrence: CZ)
  Receive Date: 20181005
  Receipt Date: 20181005
  Transmission Date: 20190205
  Serious: Yes (Hospitalization, Other)
  Sender: FDA-Public Use
  Company Number: CZ-MYLANLABS-2018M1072942

PATIENT
  Age: 56 Year

DRUGS (1)
  1. METFORMIN [Suspect]
     Active Substance: METFORMIN HYDROCHLORIDE
     Indication: PRODUCT USED FOR UNKNOWN INDICATION
     Dosage: DOSE 3000
     Route: 048

REACTIONS (20)
  - Blood sodium decreased [Recovering/Resolving]
  - Anion gap increased [Unknown]
  - Creatinine renal clearance decreased [Recovering/Resolving]
  - Blood bicarbonate decreased [Unknown]
  - Gastrointestinal disorder [Unknown]
  - Blood creatinine increased [Recovering/Resolving]
  - Blood pH decreased [Unknown]
  - Toxicity to various agents [Unknown]
  - Lactic acidosis [Unknown]
  - Blood chloride increased [Recovering/Resolving]
  - PCO2 decreased [Unknown]
  - Blood magnesium increased [Recovering/Resolving]
  - Hypocapnia [Unknown]
  - Blood potassium increased [Recovering/Resolving]
  - Blood calcium increased [Recovering/Resolving]
  - PO2 increased [Unknown]
  - Hypovolaemia [Unknown]
  - Acute kidney injury [Recovering/Resolving]
  - Blood phosphorus decreased [Recovering/Resolving]
  - Base excess negative [Unknown]

NARRATIVE: CASE EVENT DATE: 2012
